FAERS Safety Report 9880504 (Version 3)
Quarter: 2014Q1

REPORT INFORMATION
  Report Type: Report from Study
  Country: FR (occurrence: FR)
  Receive Date: 20140207
  Receipt Date: 20140324
  Transmission Date: 20141002
  Serious: Yes (Death, Hospitalization)
  Sender: FDA-Public Use
  Company Number: FR-ROCHE-1340763

PATIENT
  Age: 59 Year
  Sex: Female
  Weight: 86 kg

DRUGS (30)
  1. METHOXY POLYETHYLENE GLYCOL-EPOETIN BETA [Suspect]
     Indication: NEPHROGENIC ANAEMIA
     Route: 058
     Dates: start: 20090915
  2. METHOXY POLYETHYLENE GLYCOL-EPOETIN BETA [Suspect]
     Route: 058
     Dates: start: 20140116
  3. ROSUVASTATIN [Concomitant]
     Route: 065
     Dates: start: 20100520
  4. HYDROXYZINE [Concomitant]
     Route: 065
     Dates: start: 20090729
  5. MANIDIPINE [Concomitant]
     Route: 065
     Dates: start: 20080124
  6. SITAGLIPTIN [Concomitant]
     Route: 065
     Dates: start: 20100216
  7. CALCIUM ACETATE [Concomitant]
     Route: 065
     Dates: start: 20110217
  8. COLECALCIFEROL [Concomitant]
     Route: 065
     Dates: start: 20090826
  9. COLECALCIFEROL [Concomitant]
     Route: 065
     Dates: start: 20060916
  10. ACIDE ACETYLSALICYLIQUE [Concomitant]
     Route: 065
     Dates: start: 20100915
  11. URAPIDIL [Concomitant]
     Route: 065
     Dates: start: 20090401
  12. SODIUM BICARBONATE [Concomitant]
     Route: 065
     Dates: start: 20110818
  13. SODIUM BICARBONATE [Concomitant]
     Route: 065
     Dates: start: 20101219
  14. CLOPIDOGREL [Concomitant]
     Route: 065
     Dates: start: 20120510
  15. BROMAZEPAM [Concomitant]
     Route: 065
     Dates: start: 20120620
  16. POTASSIUM CHLORIDE [Concomitant]
     Route: 065
     Dates: start: 20121122
  17. LOPERAMIDE [Concomitant]
     Dosage: PRN
     Route: 065
     Dates: start: 20110705
  18. TRIMEBUTINE [Concomitant]
     Dosage: PRN
     Route: 065
     Dates: start: 20110818
  19. SEVELAMER CARBONATE [Concomitant]
     Route: 065
     Dates: start: 20110324
  20. PREGABALINE [Concomitant]
     Route: 065
     Dates: start: 20120719
  21. REPAGLINIDE [Concomitant]
  22. ALFACALCIDOL [Concomitant]
  23. TRAMADOL [Concomitant]
     Route: 065
     Dates: start: 20121220
  24. DICLOFENAC [Concomitant]
     Route: 065
     Dates: start: 20121220
  25. HYDROCHLOROTHIAZIDE [Concomitant]
     Route: 065
     Dates: start: 20140124, end: 20140127
  26. FUROSEMIDE [Concomitant]
     Route: 065
     Dates: start: 20140123, end: 20140128
  27. NEBIVOLOL [Concomitant]
     Route: 065
     Dates: start: 20140123, end: 20140123
  28. AMIODARONE [Concomitant]
     Route: 065
     Dates: start: 20140126, end: 20140127
  29. BISOPROLOL [Concomitant]
     Route: 065
     Dates: start: 20140130
  30. HYDROXYZINE [Concomitant]
     Route: 065
     Dates: start: 20140124

REACTIONS (2)
  - Acute coronary syndrome [Fatal]
  - Pneumonia [Recovered/Resolved]
